FAERS Safety Report 5748334-2 (Version None)
Quarter: 2008Q2

REPORT INFORMATION
  Report Type: 
  Country: None (occurrence: None)
  Receive Date: 20080523
  Receipt Date: 20080516
  Transmission Date: 20081010
  Serious: Yes (Hospitalization, Other)
  Sender: FDA-Public Use
  Company Number: DE-AMGEN-US281174

PATIENT
  Sex: Female

DRUGS (2)
  1. ENBREL [Suspect]
     Indication: RHEUMATOID ARTHRITIS
     Dosage: UNKNOWN
     Route: 058
     Dates: start: 20030101, end: 20070101
  2. LANTAREL [Suspect]
     Indication: RHEUMATOID ARTHRITIS
     Route: 058

REACTIONS (7)
  - ANTINUCLEAR ANTIBODY INCREASED [None]
  - CONDITION AGGRAVATED [None]
  - INFECTION [None]
  - PNEUMONIA [None]
  - PYREXIA [None]
  - RHEUMATOID ARTHRITIS [None]
  - SURGERY [None]
